FAERS Safety Report 5520792-8 (Version None)
Quarter: 2007Q4

REPORT INFORMATION
  Report Type: 
  Country: None (occurrence: None)
  Receive Date: 20071119
  Receipt Date: 20071105
  Transmission Date: 20080405
  Serious: Yes (Hospitalization, Other)
  Sender: FDA-Public Use
  Company Number: CZ-ELI_LILLY_AND_COMPANY-CZ200710002069

PATIENT
  Sex: Male
  Weight: 43.8 kg

DRUGS (2)
  1. STRATTERA [Suspect]
     Indication: ATTENTION DEFICIT/HYPERACTIVITY DISORDER
     Dosage: 10 MG, DAILY (1/D)
     Route: 048
     Dates: start: 20070924, end: 20070930
  2. STRATTERA [Suspect]
     Dosage: 18 MG, DAILY (1/D)
     Route: 048
     Dates: start: 20071001, end: 20071007

REACTIONS (6)
  - AMNESIA [None]
  - HEADACHE [None]
  - LACRIMATION INCREASED [None]
  - MYOCLONIC EPILEPSY [None]
  - PALPITATIONS [None]
  - TACHYCARDIA [None]
